FAERS Safety Report 17330112 (Version 1)
Quarter: 2020Q1

REPORT INFORMATION
  Report Type: Spontaneous
  Country: US (occurrence: US)
  Receive Date: 20200127
  Receipt Date: 20200127
  Transmission Date: 20200409
  Serious: No
  Sender: FDA-Public Use
  Company Number: US-REGENERON PHARMACEUTICALS, INC.-2019-60567

PATIENT

DRUGS (3)
  1. EYLEA [Suspect]
     Active Substance: AFLIBERCEPT
     Indication: DIABETIC RETINAL OEDEMA
     Dosage: 2 MG, EVERY 7 WEEKS, IN BOTH EYES
     Route: 031
     Dates: start: 20170613, end: 20171110
  2. INSULIN [Concomitant]
     Active Substance: INSULIN NOS
     Indication: PRODUCT USED FOR UNKNOWN INDICATION
  3. EYLEA [Suspect]
     Active Substance: AFLIBERCEPT
     Dosage: 2 MG, EVERY 7 WEEKS, IN BOTH EYES
     Route: 031
     Dates: start: 20171110, end: 20171110

REACTIONS (3)
  - Product dose omission [Unknown]
  - Visual impairment [Unknown]
  - Laser therapy [Unknown]

NARRATIVE: CASE EVENT DATE: 20171211
